FAERS Safety Report 16029733 (Version 1)
Quarter: 2019Q1

REPORT INFORMATION
  Report Type: Spontaneous
  Country: US (occurrence: US)
  Receive Date: 20190204
  Receipt Date: 20190204
  Transmission Date: 20190418
  Serious: No
  Sender: FDA-Public Use
  Company Number: None

PATIENT
  Age: 20 Year
  Sex: Female
  Weight: 54.43 kg

DRUGS (2)
  1. ATIVAN [Suspect]
     Active Substance: LORAZEPAM
     Indication: OVARIAN CYST
     Dosage: ?          OTHER DOSE:0.1/20;?
     Route: 048
     Dates: start: 20181022, end: 20190114
  2. TRI-LO-MARZIA [Suspect]
     Active Substance: ETHINYL ESTRADIOL\NORGESTIMATE
     Indication: OVARIAN CYST
     Dosage: ?          OTHER DOSE:0.18/0.45/0.25-25;?
     Route: 048
     Dates: start: 20190114, end: 20190125

REACTIONS (5)
  - Nausea [None]
  - Headache [None]
  - Eczema [None]
  - Dermatitis atopic [None]
  - Rash [None]

NARRATIVE: CASE EVENT DATE: 20190114
